FAERS Safety Report 17378395 (Version 1)
Quarter: 2020Q1

REPORT INFORMATION
  Report Type: Spontaneous
  Country: US (occurrence: US)
  Receive Date: 20200206
  Receipt Date: 20200206
  Transmission Date: 20200409
  Serious: No
  Sender: FDA-Public Use
  Company Number: US-ABBVIE-19K-163-2669390-00

PATIENT
  Age: 65 Year
  Sex: Female

DRUGS (2)
  1. HUMIRA [Suspect]
     Active Substance: ADALIMUMAB
     Indication: RHEUMATOID ARTHRITIS
     Route: 058
     Dates: start: 2017
  2. HUMIRA [Suspect]
     Active Substance: ADALIMUMAB
     Route: 058

REACTIONS (9)
  - Device issue [Unknown]
  - Eye irritation [Unknown]
  - Influenza [Unknown]
  - Depressed mood [Unknown]
  - Vision blurred [Unknown]
  - Eye swelling [Unknown]
  - Erythema [Unknown]
  - Accidental exposure to product [Unknown]
  - Papule [Unknown]

NARRATIVE: CASE EVENT DATE: 20190123
